FAERS Safety Report 22252738 (Version 1)
Quarter: 2023Q2

REPORT INFORMATION
  Report Type: Report from Study
  Country: GR (occurrence: GR)
  Receive Date: 20230426
  Receipt Date: 20230426
  Transmission Date: 20230722
  Serious: Yes (Hospitalization, Congenital Anomaly)
  Sender: FDA-Public Use
  Company Number: GR-ABBVIE-4740829

PATIENT
  Age: 65 Year
  Sex: Female
  Weight: 67 kg

DRUGS (1)
  1. VENETOCLAX [Suspect]
     Active Substance: VENETOCLAX
     Indication: Acute myeloid leukaemia
     Dosage: UNIT DOSE: 400 OF UNSPECIFIED UNITS
     Route: 048
     Dates: start: 20220614, end: 20221030

REACTIONS (1)
  - Myopericarditis [Recovered/Resolved]

NARRATIVE: CASE EVENT DATE: 20221030
